FAERS Safety Report 16014965 (Version 1)
Quarter: 2019Q1

REPORT INFORMATION
  Report Type: Spontaneous
  Country: JP (occurrence: JP)
  Receive Date: 20190227
  Receipt Date: 20190227
  Transmission Date: 20190418
  Serious: Yes (Life-Threatening, Hospitalization)
  Sender: FDA-Public Use
  Company Number: JP-UCBSA-2018011764

PATIENT
  Age: 20 Year
  Sex: Male

DRUGS (3)
  1. DEPAKENE [Suspect]
     Active Substance: VALPROIC ACID
     Indication: JUVENILE MYOCLONIC EPILEPSY
     Dosage: 600 MG, DAILY
     Route: 048
  2. SELENICA-R [Suspect]
     Active Substance: VALPROATE SODIUM
     Indication: PRODUCT USED FOR UNKNOWN INDICATION
     Dosage: UNK
     Route: 048
  3. E KEPPRA [Suspect]
     Active Substance: LEVETIRACETAM
     Indication: EPILEPSY
     Dosage: 500 MG DAILY
     Route: 048
     Dates: start: 201512, end: 201709

REACTIONS (1)
  - Fixed eruption [Recovered/Resolved with Sequelae]

NARRATIVE: CASE EVENT DATE: 20170910
